FAERS Safety Report 23167052 (Version 2)
Quarter: 2023Q4

REPORT INFORMATION
  Report Type: Spontaneous
  Country: US (occurrence: US)
  Receive Date: 20231109
  Receipt Date: 20231122
  Transmission Date: 20240110
  Serious: Yes (Hospitalization)
  Sender: FDA-Public Use
  Company Number: US-TEVA-2023-US-2942233

PATIENT
  Age: 5 Year
  Sex: Male

DRUGS (17)
  1. FLUCONAZOLE [Suspect]
     Active Substance: FLUCONAZOLE
     Indication: Fusarium infection
     Dosage: 100 MILLIGRAM DAILY; ONCE A DAY
     Route: 048
  2. TOBRAMYCIN [Suspect]
     Active Substance: TOBRAMYCIN
     Indication: Bacillus infection
     Dosage: 14MG/ML, EACH 1 DROP EVERY 4H
     Route: 061
  3. TOBRAMYCIN [Suspect]
     Active Substance: TOBRAMYCIN
     Indication: Enterobacter infection
  4. TOBRAMYCIN [Suspect]
     Active Substance: TOBRAMYCIN
     Indication: Bacterial infection
  5. AMPHOTERICIN B [Suspect]
     Active Substance: AMPHOTERICIN B
     Indication: Fusarium infection
     Dosage: INFUSION
     Route: 061
  6. AMPHOTERICIN B [Suspect]
     Active Substance: AMPHOTERICIN B
     Route: 061
  7. VANCOMYCIN [Suspect]
     Active Substance: VANCOMYCIN
     Indication: Bacillus infection
     Dosage: INFUSION 100MG/L
     Route: 061
  8. VANCOMYCIN [Suspect]
     Active Substance: VANCOMYCIN
     Indication: Enterobacter infection
     Route: 042
  9. VANCOMYCIN [Suspect]
     Active Substance: VANCOMYCIN
     Indication: Bacterial infection
     Dosage: 20MG/ML
     Route: 061
  10. MICONAZOLE [Suspect]
     Active Substance: MICONAZOLE
     Indication: Fusarium infection
     Dosage: INFUSION
     Route: 061
  11. MICONAZOLE [Suspect]
     Active Substance: MICONAZOLE
     Route: 061
  12. GENTAMICIN [Suspect]
     Active Substance: GENTAMICIN
     Indication: Bacillus infection
     Dosage: INFUSION 100MG/L
     Route: 061
  13. GENTAMICIN [Suspect]
     Active Substance: GENTAMICIN
     Indication: Enterobacter infection
  14. GENTAMICIN [Suspect]
     Active Substance: GENTAMICIN
     Indication: Bacterial infection
  15. CEFTAZIDIME [Suspect]
     Active Substance: CEFTAZIDIME
     Indication: Bacillus infection
     Route: 042
  16. CEFTAZIDIME [Suspect]
     Active Substance: CEFTAZIDIME
     Indication: Enterobacter infection
  17. CEFTAZIDIME [Suspect]
     Active Substance: CEFTAZIDIME
     Indication: Bacterial infection

REACTIONS (1)
  - Keratitis bacterial [Recovered/Resolved]
